FAERS Safety Report 6209241-4 (Version None)
Quarter: 2009Q2

REPORT INFORMATION
  Report Type: 
  Country: None (occurrence: None)
  Receive Date: 20090529
  Receipt Date: 20090515
  Transmission Date: 20091009
  Serious: Yes (Hospitalization)
  Sender: FDA-Public Use
  Company Number: GB-BAUSCH-2009BL002478

PATIENT
  Age: 53 Year
  Sex: Male

DRUGS (7)
  1. DEXAMETHASONE 4MG TAB [Suspect]
     Indication: MULTIPLE MYELOMA
     Route: 048
     Dates: start: 20080818, end: 20090223
  2. VELCADE [Suspect]
     Indication: MULTIPLE MYELOMA
     Dates: start: 20081031, end: 20090226
  3. ACYCLOVIR [Concomitant]
     Indication: DRUG USE FOR UNKNOWN INDICATION
     Dates: start: 20081226, end: 20090102
  4. ALLOPURINOL [Concomitant]
     Indication: GOUT
     Route: 048
     Dates: start: 20080818, end: 20090102
  5. CLODRONATE DISODIUM [Concomitant]
     Indication: BONE DISORDER
     Dates: start: 20080915, end: 20090102
  6. ENOXAPARIN SODIUM [Concomitant]
     Indication: DRUG USE FOR UNKNOWN INDICATION
     Route: 058
     Dates: start: 20081225, end: 20090102
  7. ONDANSETRON [Concomitant]
     Indication: DRUG USE FOR UNKNOWN INDICATION
     Dates: start: 20080818, end: 20081012

REACTIONS (1)
  - NEUROPATHY PERIPHERAL [None]
